FAERS Safety Report 25684835 (Version 1)
Quarter: 2025Q3

REPORT INFORMATION
  Report Type: Spontaneous
  Country: CH (occurrence: CH)
  Receive Date: 20250815
  Receipt Date: 20250815
  Transmission Date: 20251020
  Serious: Yes (Hospitalization, Other)
  Sender: STRIDES
  Company Number: CH-STRIDES ARCOLAB LIMITED-2025SP010318

PATIENT
  Age: 62 Year
  Sex: Male

DRUGS (5)
  1. COLCHICINE [Suspect]
     Active Substance: COLCHICINE
     Indication: Gout
     Route: 065
  2. METRONIDAZOLE [Suspect]
     Active Substance: METRONIDAZOLE
     Indication: Gastrointestinal infection
     Route: 065
  3. METRONIDAZOLE [Suspect]
     Active Substance: METRONIDAZOLE
     Indication: Evidence based treatment
  4. CEFTRIAXONE [Suspect]
     Active Substance: CEFTRIAXONE
     Indication: Gastrointestinal infection
     Route: 065
  5. CEFTRIAXONE [Suspect]
     Active Substance: CEFTRIAXONE
     Indication: Evidence based treatment

REACTIONS (6)
  - Septic shock [None]
  - Haemolytic uraemic syndrome [None]
  - Capnocytophaga sepsis [None]
  - Condition aggravated [None]
  - Disease progression [None]
  - Renal failure [None]
